FAERS Safety Report 8300363-0 (Version None)
Quarter: 2012Q2

REPORT INFORMATION
  Report Type: 
  Country: None (occurrence: None)
  Receive Date: 20120420
  Receipt Date: 20120410
  Transmission Date: 20120825
  Serious: Yes (Hospitalization)
  Sender: FDA-Public Use
  Company Number: US-PERRIGO-12US000355

PATIENT
  Sex: Male
  Weight: 99.773 kg

DRUGS (2)
  1. TUSSIN DM LIQ 359 [Suspect]
     Indication: NASOPHARYNGITIS
     Dosage: APPROXIMATELY 20 ML, EVERY 4 HOURS
     Route: 048
     Dates: start: 20120115, end: 20120116
  2. TUSSIN DM LIQ 359 [Suspect]
     Indication: RESPIRATORY TRACT CONGESTION

REACTIONS (5)
  - INCORRECT DOSE ADMINISTERED [None]
  - DYSPNOEA [None]
  - CONDITION AGGRAVATED [None]
  - LUNG DISORDER [None]
  - DRUG INEFFECTIVE [None]
